FAERS Safety Report 9515097 (Version 4)
Quarter: 2014Q1

REPORT INFORMATION
  Report Type: Spontaneous
  Country: JP (occurrence: JP)
  Receive Date: 20130911
  Receipt Date: 20140331
  Transmission Date: 20141002
  Serious: Yes (Hospitalization)
  Sender: FDA-Public Use
  Company Number: JP-JNJFOC-20130904268

PATIENT
  Age: 73 Year
  Sex: Male
  Weight: 46 kg

DRUGS (8)
  1. XARELTO [Suspect]
     Indication: CEREBROVASCULAR ACCIDENT PROPHYLAXIS
     Route: 048
     Dates: start: 20130531, end: 20130704
  2. XARELTO [Suspect]
     Indication: ATRIAL FIBRILLATION
     Route: 048
     Dates: start: 20130531, end: 20130704
  3. TAKEPRON [Concomitant]
     Indication: GASTRIC ULCER
     Route: 050
     Dates: start: 20130520, end: 20130704
  4. MAINTATE [Concomitant]
     Indication: ATRIAL FIBRILLATION
     Route: 050
     Dates: start: 20130619
  5. MIYA BM [Concomitant]
     Indication: DIARRHOEA
     Route: 050
     Dates: end: 20130704
  6. SODIUM CHLORIDE [Concomitant]
     Indication: HYPONATRAEMIA
     Route: 050
     Dates: start: 20130603
  7. DIOVAN [Concomitant]
     Route: 050
     Dates: start: 201306
  8. TISSUE PLASMINOGEN ACTIVATOR, RECOMBINATIVE [Concomitant]
     Route: 065

REACTIONS (3)
  - Embolic stroke [Not Recovered/Not Resolved]
  - Haemorrhagic cerebral infarction [Unknown]
  - Drug ineffective [Unknown]
